FAERS Safety Report 23546093 (Version 3)
Quarter: 2024Q2

REPORT INFORMATION
  Report Type: Spontaneous
  Country: US (occurrence: US)
  Receive Date: 20240220
  Receipt Date: 20240531
  Transmission Date: 20240716
  Serious: Yes (Other)
  Sender: FDA-Public Use
  Company Number: US-Calliditas-2024CAL00206

PATIENT
  Age: 31 Year
  Sex: Female
  Weight: 54 kg

DRUGS (3)
  1. TARPEYO [Suspect]
     Active Substance: BUDESONIDE
     Indication: IgA nephropathy
     Dosage: 16 MG (4 MG CAPSULES) ONCE DAILY
     Route: 048
     Dates: start: 20240127
  2. TYLENOL [Suspect]
     Active Substance: ACETAMINOPHEN
  3. LOSARTAN [Concomitant]
     Active Substance: LOSARTAN

REACTIONS (13)
  - Contusion [Not Recovered/Not Resolved]
  - Heart rate increased [Unknown]
  - Chest pain [Recovered/Resolved]
  - Blood pressure increased [Unknown]
  - Swelling face [Not Recovered/Not Resolved]
  - Laboratory test abnormal [Unknown]
  - Proteinuria [Unknown]
  - Glomerular filtration rate decreased [Unknown]
  - Blood urine present [Unknown]
  - Headache [Unknown]
  - Periorbital swelling [Unknown]
  - Renal impairment [Unknown]
  - Blood creatinine increased [Unknown]
